FAERS Safety Report 4564709-1 (Version None)
Quarter: 2005Q1

REPORT INFORMATION
  Report Type: 
  Country: None (occurrence: None)
  Receive Date: 20050121
  Receipt Date: 20050112
  Transmission Date: 20050727
  Serious: Yes (Hospitalization)
  Sender: FDA-Public Use
  Company Number: 2005012034

PATIENT
  Age: 95 Year
  Sex: Female
  Weight: 36 kg

DRUGS (6)
  1. PREDNISONE TAB [Suspect]
     Indication: ILL-DEFINED DISORDER
     Dosage: 40 MG (BID), ORAL
     Route: 048
     Dates: end: 20030509
  2. ALDACTAZINE (SPIRONOLACTONE, ALTIZIDE) [Suspect]
     Indication: ILL-DEFINED DISORDER
     Dosage: ORAL
     Route: 048
     Dates: end: 20030507
  3. FENSPIRIDE HYDROCHLORIDE (FENSPIRIDE HYDROCHLORIDE) [Concomitant]
  4. FENSPIRIDE HYDROCHLORIDE (FENSPIRIDE HYDROCHLORIDE) [Concomitant]
  5. ROXITHROMYCIN (ROXITHROMYCIN) [Concomitant]
  6. NITROGLYCERIN [Concomitant]

REACTIONS (4)
  - HYPOKALAEMIA [None]
  - HYPONATRAEMIA [None]
  - LUNG INFECTION [None]
  - RENAL FAILURE [None]
